FAERS Safety Report 9758485 (Version 1)
Quarter: 2013Q4

REPORT INFORMATION
  Report Type: Spontaneous
  Country: US (occurrence: None)
  Receive Date: 20131216
  Receipt Date: 20131216
  Transmission Date: 20140711
  Serious: No
  Sender: FDA-Public Use
  Company Number: 1000044902

PATIENT
  Sex: Female

DRUGS (1)
  1. LINZESS (LINACLOTIDE) (CAPSULES) [Suspect]
     Dosage: 290 MCG (290 MCG, 1 IN 1 D) , ORAL

REACTIONS (1)
  - Constipation [None]
